FAERS Safety Report 6202820-X (Version None)
Quarter: 2009Q2

REPORT INFORMATION
  Report Type: 
  Country: None (occurrence: None)
  Receive Date: 20090526
  Receipt Date: 20090521
  Transmission Date: 20091009
  Serious: Yes (Hospitalization)
  Sender: FDA-Public Use
  Company Number: US-GILEAD-2009-0022102

PATIENT
  Sex: Female

DRUGS (20)
  1. LETAIRIS [Suspect]
     Indication: PULMONARY ARTERIAL HYPERTENSION
     Route: 048
     Dates: start: 20090427
  2. VITAMIN A + D [Concomitant]
  3. LISINOPRIL [Concomitant]
  4. CRESTOR [Concomitant]
  5. OXYGEN [Concomitant]
  6. ALBUTEROL [Concomitant]
  7. LYRICA [Concomitant]
  8. SPIRIVA [Concomitant]
  9. ADVAIR HFA [Concomitant]
  10. ELAVIL [Concomitant]
  11. NORFLEX [Concomitant]
  12. ZANTAC [Concomitant]
  13. LEVOXYL [Concomitant]
  14. ACIPHEX [Concomitant]
  15. HAIR, NAIL AND SKIN VITAMIN [Concomitant]
  16. LYSINE [Concomitant]
  17. CALCIUM [Concomitant]
  18. VITAMIN B-100 [Concomitant]
  19. ASCORBIC ACID [Concomitant]
  20. VITAMIN E [Concomitant]

REACTIONS (2)
  - DYSPNOEA [None]
  - PNEUMONIA [None]
